FAERS Safety Report 7601766-X (Version None)
Quarter: 2011Q3

REPORT INFORMATION
  Report Type: 
  Country: None (occurrence: None)
  Receive Date: 20110711
  Receipt Date: 20110701
  Transmission Date: 20111222
  Serious: Yes (Hospitalization, Other)
  Sender: FDA-Public Use
  Company Number: BR-US-EMD SERONO, INC.-7042243

PATIENT
  Sex: Female

DRUGS (5)
  1. AMITRIPTYLINE HCL [Concomitant]
  2. AMYTRIPTYLINE [Concomitant]
  3. UNKNOWN [Concomitant]
     Indication: CONTRACEPTION
  4. AZATHIOPRIN [Concomitant]
  5. REBIF [Suspect]
     Indication: RELAPSING-REMITTING MULTIPLE SCLEROSIS
     Dates: start: 20080324, end: 20110206

REACTIONS (4)
  - CEREBRAL THROMBOSIS [None]
  - QUADRIPARESIS [None]
  - POSTERIOR REVERSIBLE ENCEPHALOPATHY SYNDROME [None]
  - WRONG TECHNIQUE IN DRUG USAGE PROCESS [None]
